FAERS Safety Report 7804576-3 (Version None)
Quarter: 2011Q4

REPORT INFORMATION
  Report Type: 
  Country: None (occurrence: None)
  Receive Date: 20111010
  Receipt Date: 20111005
  Transmission Date: 20120403
  Serious: Yes (Other)
  Sender: FDA-Public Use
  Company Number: CA-PFIZER INC-2011215903

PATIENT
  Age: 74 Year
  Sex: Female
  Weight: 68.8 kg

DRUGS (7)
  1. NORVASC [Suspect]
     Indication: HYPERTENSION
     Dosage: 5 MG AT BEDTIME
     Route: 048
     Dates: start: 20110910
  2. METFORMIN [Concomitant]
     Indication: TYPE 2 DIABETES MELLITUS
     Dosage: 250 MG, 3X/DAY
     Route: 048
  3. LEVOTHYROXINE [Concomitant]
     Indication: HYPOTHYROIDISM
     Dosage: 0.075 MG, 1X/DAY
  4. VENTOLIN [Concomitant]
     Indication: ASTHMA
     Dosage: UNK INHALATION AS NEEDED
     Route: 055
  5. CALCIUM [Concomitant]
     Dosage: UNK
  6. ATENOLOL [Concomitant]
     Indication: HYPERTENSION
     Dosage: 25 MG, 2X/DAY
     Route: 048
  7. FLOVENT [Concomitant]
     Indication: ASTHMA
     Dosage: 250 MG INHALATION, 2X/DAY
     Route: 055

REACTIONS (1)
  - HYPOGLYCAEMIA [None]
